FAERS Safety Report 10471135 (Version 1)
Quarter: 2014Q3

REPORT INFORMATION
  Report Type: Spontaneous
  Country: FR (occurrence: FR)
  Receive Date: 20140923
  Receipt Date: 20140923
  Transmission Date: 20150326
  Serious: Yes (Hospitalization)
  Sender: FDA-Public Use
  Company Number: FR-BRISTOL-MYERS SQUIBB COMPANY-21403860

PATIENT
  Age: 84 Year
  Sex: Female

DRUGS (9)
  1. COUMADINE [Suspect]
     Active Substance: WARFARIN SODIUM
     Dosage: TABS;DAY1:1 TAB; DAY3: 1/2 TAB;INTERRUPTED:13AUG2014
     Route: 048
  2. AERIUS [Concomitant]
     Active Substance: DESLORATADINE
  3. LASILIX [Concomitant]
     Active Substance: FUROSEMIDE
  4. DISCOTRINE [Concomitant]
     Active Substance: NITROGLYCERIN
  5. KARDEGIC [Suspect]
     Active Substance: ASPIRIN LYSINE
     Dosage: POWDER FOR ORAL SOLUTION
     Dates: end: 20140813
  6. BISOPROLOL [Concomitant]
     Active Substance: BISOPROLOL
  7. CORDARONE [Concomitant]
     Active Substance: AMIODARONE HYDROCHLORIDE
  8. UVEDOSE [Concomitant]
     Active Substance: CHOLECALCIFEROL
  9. LEVOTHYROX [Concomitant]
     Active Substance: LEVOTHYROXINE

REACTIONS (5)
  - Melaena [Recovered/Resolved]
  - Anaemia [Recovered/Resolved]
  - Vomiting [Unknown]
  - Cardiac failure [Unknown]
  - Lung infection [Unknown]

NARRATIVE: CASE EVENT DATE: 20140810
